FAERS Safety Report 10237388 (Version 2)
Quarter: 2015Q1

REPORT INFORMATION
  Report Type: Spontaneous
  Country: JP (occurrence: JP)
  Receive Date: 20140614
  Receipt Date: 20150302
  Transmission Date: 20150720
  Serious: Yes (Other)
  Sender: FDA-Public Use
  Company Number: JP-AMGEN-JPNSP2014044305

PATIENT
  Age: 52 Year
  Sex: Male

DRUGS (2)
  1. IRINOTECAN HYDROCHLORIDE. [Concomitant]
     Active Substance: IRINOTECAN HYDROCHLORIDE
     Indication: ANAL CANCER RECURRENT
     Dosage: UNK
  2. VECTIBIX [Suspect]
     Active Substance: PANITUMUMAB
     Indication: ANAL CANCER RECURRENT
     Dosage: UNK
     Route: 041

REACTIONS (1)
  - Hypomagnesaemia [Recovering/Resolving]
